FAERS Safety Report 11089137 (Version 42)
Quarter: 2020Q3

REPORT INFORMATION
  Report Type: Other
  Country: DE (occurrence: DE)
  Receive Date: 20150505
  Receipt Date: 20200717
  Transmission Date: 20201102
  Serious: Yes (Hospitalization, Other)
  Sender: FDA-Public Use
  Company Number: DE-ROCHE-1459359

PATIENT
  Age: 50 Year
  Sex: Male
  Weight: 90 kg

DRUGS (26)
  1. ROACTEMRA [Suspect]
     Active Substance: TOCILIZUMAB
     Indication: RHEUMATOID ARTHRITIS
     Route: 042
     Dates: start: 201001, end: 20140711
  2. ROACTEMRA [Suspect]
     Active Substance: TOCILIZUMAB
     Route: 058
     Dates: start: 20160816
  3. ROACTEMRA [Suspect]
     Active Substance: TOCILIZUMAB
     Route: 058
     Dates: start: 20170316, end: 201706
  4. IBUPROFEN. [Concomitant]
     Active Substance: IBUPROFEN
     Dosage: AS REQUIRED
  5. CORTISONE [Concomitant]
     Active Substance: CORTISONE
  6. MARCUMAR [Suspect]
     Active Substance: PHENPROCOUMON
     Indication: PRODUCT USED FOR UNKNOWN INDICATION
     Route: 065
  7. ROACTEMRA [Suspect]
     Active Substance: TOCILIZUMAB
     Route: 058
     Dates: start: 20161212
  8. ROACTEMRA [Suspect]
     Active Substance: TOCILIZUMAB
     Route: 058
  9. KORTISON [Concomitant]
     Active Substance: CORTISONE ACETATE
  10. DUSPATAL RETARD [Concomitant]
     Active Substance: MEBEVERINE HYDROCHLORIDE
     Dosage: SLOW?RELEASE
  11. KORTISON [Concomitant]
     Active Substance: CORTISONE ACETATE
  12. JODTHYROX [Concomitant]
     Active Substance: LEVOTHYROXINE SODIUM\POTASSIUM IODIDE
  13. ROACTEMRA [Suspect]
     Active Substance: TOCILIZUMAB
     Indication: RHEUMATOID ARTHRITIS
     Dosage: DATE OF LAST DOSE OF TOCILIZUMAB PRIOR TO SAE 28/FEB/2015
     Route: 058
     Dates: start: 20140910
  14. ROACTEMRA [Suspect]
     Active Substance: TOCILIZUMAB
     Route: 058
  15. ROACTEMRA [Suspect]
     Active Substance: TOCILIZUMAB
     Route: 058
     Dates: start: 20171107
  16. KORTISON [Concomitant]
     Active Substance: CORTISONE ACETATE
     Indication: RHEUMATOID ARTHRITIS
     Dosage: DOSE: 3?9 MG
     Route: 048
  17. ORTOTON [Concomitant]
  18. PANTOPRAZOL [Concomitant]
     Active Substance: PANTOPRAZOLE SODIUM
  19. IBUPROFEN. [Concomitant]
     Active Substance: IBUPROFEN
     Dosage: AS REQUIRED
  20. ROACTEMRA [Suspect]
     Active Substance: TOCILIZUMAB
     Route: 058
     Dates: start: 20160204
  21. ROACTEMRA [Suspect]
     Active Substance: TOCILIZUMAB
     Route: 058
     Dates: start: 201912, end: 202002
  22. NOVALGIN (METAMIZOLE SODIUM) [Concomitant]
     Active Substance: METAMIZOLE SODIUM
  23. CORTISONE [Concomitant]
     Active Substance: CORTISONE
  24. ROACTEMRA [Suspect]
     Active Substance: TOCILIZUMAB
     Route: 058
     Dates: start: 201501, end: 201507
  25. PREDNISOLON [Concomitant]
     Active Substance: PREDNISOLONE
  26. ZEPATIER [Concomitant]
     Active Substance: ELBASVIR\GRAZOPREVIR

REACTIONS (56)
  - Abdominal pain upper [Recovered/Resolved]
  - Oropharyngeal pain [Unknown]
  - Joint swelling [Recovered/Resolved]
  - Semen volume decreased [Not Recovered/Not Resolved]
  - Tendonitis [Not Recovered/Not Resolved]
  - Speech disorder [Not Recovered/Not Resolved]
  - Oropharyngeal swelling [Unknown]
  - Vital capacity decreased [Unknown]
  - Bone marrow oedema [Unknown]
  - Lymphadenopathy [Not Recovered/Not Resolved]
  - Respiratory tract infection [Unknown]
  - Oral mucosal eruption [Recovered/Resolved]
  - Toothache [Not Recovered/Not Resolved]
  - White blood cell count increased [Recovered/Resolved]
  - Joint swelling [Not Recovered/Not Resolved]
  - Gastrointestinal disorder [Unknown]
  - Body temperature increased [Not Recovered/Not Resolved]
  - Infection susceptibility increased [Unknown]
  - Constipation [Not Recovered/Not Resolved]
  - Pneumonia [Recovered/Resolved]
  - Tooth disorder [Not Recovered/Not Resolved]
  - Joint swelling [Not Recovered/Not Resolved]
  - C-reactive protein increased [Not Recovered/Not Resolved]
  - Hypertension [Not Recovered/Not Resolved]
  - Anxiety [Recovered/Resolved]
  - Neutrophil count increased [Unknown]
  - Dental caries [Unknown]
  - Ear pain [Recovered/Resolved]
  - Diverticulitis [Recovered/Resolved]
  - Sudden hearing loss [Recovering/Resolving]
  - Tonsillitis [Not Recovered/Not Resolved]
  - Sciatica [Recovering/Resolving]
  - Somnolence [Not Recovered/Not Resolved]
  - Rash erythematous [Recovered/Resolved]
  - Psoriasis [Recovered/Resolved]
  - Rheumatoid arthritis [Recovered/Resolved]
  - Blood pressure decreased [Recovered/Resolved]
  - Diarrhoea [Recovered/Resolved]
  - Hypersensitivity [Recovered/Resolved]
  - Dizziness [Recovered/Resolved]
  - Nasal congestion [Not Recovered/Not Resolved]
  - Dyspnoea [Unknown]
  - Injection site erythema [Not Recovered/Not Resolved]
  - Oropharyngeal pain [Recovered/Resolved]
  - Borrelia infection [Not Recovered/Not Resolved]
  - Musculoskeletal chest pain [Not Recovered/Not Resolved]
  - Arthralgia [Recovered/Resolved]
  - Off label use [Unknown]
  - Pharyngeal inflammation [Not Recovered/Not Resolved]
  - Blood pressure increased [Recovered/Resolved]
  - Lymphocyte count decreased [Unknown]
  - Arthralgia [Not Recovered/Not Resolved]
  - Pharyngitis [Recovered/Resolved]
  - Salivary hypersecretion [Not Recovered/Not Resolved]
  - Skin disorder [Recovered/Resolved]
  - Gingivitis [Recovered/Resolved]

NARRATIVE: CASE EVENT DATE: 201401
